FAERS Safety Report 5423558-2 (Version None)
Quarter: 2007Q3

REPORT INFORMATION
  Report Type: 
  Country: None (occurrence: None)
  Receive Date: 20070821
  Receipt Date: 20070821
  Transmission Date: 20080115
  Serious: Yes (Hospitalization)
  Sender: FDA-Public Use
  Company Number: None

PATIENT
  Age: 69 Year
  Sex: Male

DRUGS (4)
  1. GEMZAR [Suspect]
     Indication: PANCREATIC CARCINOMA
     Dosage: 750MG 1XWK X 3WKS IV
     Route: 042
     Dates: start: 20070706
  2. GEMZAR [Suspect]
     Indication: PANCREATIC CARCINOMA
     Dosage: 750MG 1XWK X 3WKS IV
     Route: 042
     Dates: start: 20070716
  3. GEMZAR [Suspect]
     Indication: PANCREATIC CARCINOMA
     Dosage: 750MG 1XWK X 3WKS IV
     Route: 042
     Dates: start: 20070723
  4. LAPATINIB [Suspect]
     Indication: PANCREATIC CARCINOMA
     Dosage: 1250MG DAILY PO
     Route: 048
     Dates: start: 20070706

REACTIONS (13)
  - ABDOMINAL PAIN [None]
  - BILE OUTPUT INCREASED [None]
  - CHOLANGITIS [None]
  - ENTEROCOCCAL INFECTION [None]
  - FLANK PAIN [None]
  - FUNGAL INFECTION [None]
  - INTERNATIONAL NORMALISED RATIO INCREASED [None]
  - ORAL INTAKE REDUCED [None]
  - PERINEPHRIC ABSCESS [None]
  - PROTHROMBIN TIME PROLONGED [None]
  - PYREXIA [None]
  - SEPSIS [None]
  - THROMBOCYTHAEMIA [None]
